FAERS Safety Report 8935460 (Version 2)
Quarter: 2013Q1

REPORT INFORMATION
  Report Type: Spontaneous
  Country: GB (occurrence: None)
  Receive Date: 20121121
  Receipt Date: 20130104
  Transmission Date: 20140127
  Serious: Yes (Other)
  Sender: FDA-Public Use
  Company Number: AUR-APL-2012-04861

PATIENT
  Age: 59 Year
  Sex: Male

DRUGS (3)
  1. AMOXICILLIN (AMOXICILLIN) [Suspect]
     Indication: ROAD TRAFFIC ACCIDENT
     Dosage: (500 MG, 1 IN 6 HR)
     Dates: start: 201209, end: 201210
  2. FLUCLOXACILLIN (FLUCLOXACILLIN) [Concomitant]
  3. PARACETAMOL (PARACETAMOL) [Concomitant]

REACTIONS (8)
  - Agitation [None]
  - Rash [None]
  - Insomnia [None]
  - Dizziness [None]
  - Fatigue [None]
  - Abnormal behaviour [None]
  - Memory impairment [None]
  - Anger [None]
